FAERS Safety Report 13415699 (Version 1)
Quarter: 2017Q2

REPORT INFORMATION
  Report Type: Report from Study
  Country: GB (occurrence: GB)
  Receive Date: 20170406
  Receipt Date: 20170406
  Transmission Date: 20170830
  Serious: Yes (Other)
  Sender: FDA-Public Use
  Company Number: GB-JNJFOC-20170305577

PATIENT
  Age: 56 Year
  Sex: Female

DRUGS (1)
  1. STELARA [Suspect]
     Active Substance: USTEKINUMAB
     Indication: PSORIASIS
     Route: 058
     Dates: start: 201502

REACTIONS (8)
  - Arthralgia [Unknown]
  - Psoriasis [Recovering/Resolving]
  - Inappropriate schedule of drug administration [Unknown]
  - Dizziness [Unknown]
  - Headache [Unknown]
  - Injection site bruising [Unknown]
  - Injection site nodule [Unknown]
  - Palpitations [Unknown]

NARRATIVE: CASE EVENT DATE: 201612
